FAERS Safety Report 5012313-3 (Version None)
Quarter: 2006Q2

REPORT INFORMATION
  Report Type: 
  Country: None (occurrence: None)
  Receive Date: 20060404
  Receipt Date: 20060117
  Transmission Date: 20061013
  Serious: No
  Sender: FDA-Public Use
  Company Number: US200601003146

PATIENT
  Sex: Female

DRUGS (2)
  1. CYMBALTA [Suspect]
     Dosage: 60 MG, DAILY (1/D), ORAL; 90 MG, DAILY (1/D),ORAL
     Route: 048
  2. ATIVAN [Concomitant]

REACTIONS (1)
  - BLOOD PRESSURE INCREASED [None]
